FAERS Safety Report 25942683 (Version 1)
Quarter: 2025Q4

REPORT INFORMATION
  Report Type: Report from Study
  Country: US (occurrence: US)
  Receive Date: 20251021
  Receipt Date: 20251021
  Transmission Date: 20260117
  Serious: Yes (Other)
  Sender: ROCHE
  Company Number: US-ROCHE-3196983

PATIENT
  Sex: Female
  Weight: 62.14 kg

DRUGS (14)
  1. MYCOPHENOLATE MOFETIL [Suspect]
     Active Substance: MYCOPHENOLATE MOFETIL
     Indication: Dermatomyositis
     Dosage: 2 AT MORNING AND 1 AT EVENING IN A DAY
     Route: 048
     Dates: start: 20220711
  2. MYCOPHENOLATE MOFETIL [Suspect]
     Active Substance: MYCOPHENOLATE MOFETIL
     Indication: Myopathy
     Dosage: 1000 MG CELLCEPT TWICE DAILY (2 TABLETS IN THE MORNING AND 2 TABLETS AT NIGHT)
     Route: 048
     Dates: start: 20220701
  3. PREDNISONE [Concomitant]
     Active Substance: PREDNISONE
     Dosage: 5-50 MG/D ,ONGOING
     Route: 048
     Dates: start: 2003
  4. TRIAMCINOLONE [Concomitant]
     Active Substance: TRIAMCINOLONE
  5. MOMETASONE [Concomitant]
     Active Substance: MOMETASONE
  6. CLOBETASOL [Concomitant]
     Active Substance: CLOBETASOL
  7. CLOBETASOL [Concomitant]
     Active Substance: CLOBETASOL
  8. TACROLIMUS [Concomitant]
     Active Substance: TACROLIMUS
     Dates: start: 202208
  9. KETOCONAZOLE [Concomitant]
     Active Substance: KETOCONAZOLE
  10. CIPROFLOXACIN [Concomitant]
     Active Substance: CIPROFLOXACIN
     Route: 048
  11. CALCIUM [Concomitant]
     Active Substance: CALCIUM
  12. BIOTIN [Concomitant]
     Active Substance: BIOTIN
  13. VITAMIN D3 [Concomitant]
     Active Substance: CHOLECALCIFEROL
  14. VITAMIN B COMPLEX [Concomitant]
     Active Substance: CYANOCOBALAMIN\DEXPANTHENOL\NIACINAMIDE\PYRIDOXINE HYDROCHLORIDE\RIBOFLAVIN 5^-PHOSPHATE SODIUM\THIA

REACTIONS (3)
  - Off label use [Unknown]
  - Circumstance or information capable of leading to medication error [Unknown]
  - Squamous cell carcinoma [Unknown]
